FAERS Safety Report 12698684 (Version 1)
Quarter: 2016Q3

REPORT INFORMATION
  Report Type: Spontaneous
  Country: US (occurrence: US)
  Receive Date: 20160830
  Receipt Date: 20160830
  Transmission Date: 20161109
  Serious: No
  Sender: FDA-Public Use
  Company Number: US-PERRIGO-16US014003

PATIENT
  Age: 55 Year
  Sex: Female
  Weight: 79.37 kg

DRUGS (2)
  1. EVAMIST [Suspect]
     Active Substance: ESTRADIOL
     Indication: HORMONE REPLACEMENT THERAPY
     Dosage: 3.06 MG, QD
     Route: 062
     Dates: start: 2015, end: 20160223
  2. EVAMIST [Suspect]
     Active Substance: ESTRADIOL
     Dosage: UKNOWN, SINGLE
     Route: 062
     Dates: start: 20160224, end: 20160224

REACTIONS (3)
  - Underdose [Recovered/Resolved]
  - Incorrect dose administered [Recovered/Resolved]
  - No adverse event [None]

NARRATIVE: CASE EVENT DATE: 2015
